FAERS Safety Report 7238971-0 (Version None)
Quarter: 2011Q1

REPORT INFORMATION
  Report Type: 
  Country: None (occurrence: None)
  Receive Date: 20110121
  Receipt Date: 20110107
  Transmission Date: 20110831
  Serious: Yes (Hospitalization, Other)
  Sender: FDA-Public Use
  Company Number: US-ASTRAZENECA-2010SE53669

PATIENT
  Age: 55 Year
  Sex: Male

DRUGS (1)
  1. SYMBICORT [Suspect]
     Route: 055

REACTIONS (5)
  - TRAUMATIC BRAIN INJURY [None]
  - POST-TRAUMATIC STRESS DISORDER [None]
  - CARDIAC ABLATION [None]
  - ACCIDENT AT HOME [None]
  - AMNESIA [None]
